FAERS Safety Report 12659310 (Version 1)
Quarter: 2016Q3

REPORT INFORMATION
  Report Type: Spontaneous
  Country: US (occurrence: US)
  Receive Date: 20160817
  Receipt Date: 20160817
  Transmission Date: 20161109
  Serious: No
  Sender: FDA-Public Use
  Company Number: US-BEH-2016072710

PATIENT
  Sex: Female
  Weight: 58.96 kg

DRUGS (13)
  1. EPIPEN [Concomitant]
     Active Substance: EPINEPHRINE
  2. HEPARIN [Concomitant]
     Active Substance: HEPARIN SODIUM
  3. LINZESS [Concomitant]
     Active Substance: LINACLOTIDE
  4. PHILLIPS                           /00061602/ [Concomitant]
  5. BERINERT [Suspect]
     Active Substance: HUMAN C1-ESTERASE INHIBITOR
     Indication: HEREDITARY ANGIOEDEMA
     Dosage: 1500 IU, PRN
     Route: 042
  6. SODIUM CHLORIDE. [Concomitant]
     Active Substance: SODIUM CHLORIDE
  7. STERILE WATER [Concomitant]
     Active Substance: WATER
  8. FIRAZYR [Concomitant]
     Active Substance: ICATIBANT ACETATE
  9. CYCLOBENZAPRINE [Concomitant]
     Active Substance: CYCLOBENZAPRINE
  10. BERINERT [Suspect]
     Active Substance: HUMAN C1-ESTERASE INHIBITOR
     Dosage: UNK
     Route: 042
     Dates: start: 20150204
  11. TRAMADOL. [Concomitant]
     Active Substance: TRAMADOL
  12. ROPINIROLE. [Concomitant]
     Active Substance: ROPINIROLE
  13. CYMBALTA [Concomitant]
     Active Substance: DULOXETINE HYDROCHLORIDE

REACTIONS (2)
  - Constipation [Unknown]
  - Muscle spasms [Unknown]
